APPROVED DRUG PRODUCT: NABUMETONE
Active Ingredient: NABUMETONE
Strength: 750MG
Dosage Form/Route: TABLET;ORAL
Application: A075179 | Product #001
Applicant: COPLEY PHARMACEUTICAL INC
Approved: Jun 6, 2000 | RLD: No | RS: No | Type: DISCN